FAERS Safety Report 14833863 (Version 1)
Quarter: 2018Q2

REPORT INFORMATION
  Report Type: Spontaneous
  Country: US (occurrence: US)
  Receive Date: 20180411
  Receipt Date: 20180411
  Transmission Date: 20180711
  Serious: No
  Sender: FDA-Public Use
  Company Number: None

PATIENT
  Sex: Female

DRUGS (7)
  1. VITAMIN D 50,000 CAPSULES [Concomitant]
  2. ALBUTEROL NEV 0.083% [Concomitant]
  3. OCALIVA [Suspect]
     Active Substance: OBETICHOLIC ACID
     Indication: PRIMARY BILIARY CHOLANGITIS
     Route: 048
     Dates: start: 20180206, end: 20180411
  4. AMLODIPINE [Concomitant]
     Active Substance: AMLODIPINE BESYLATE
  5. RIFAMPIN 150 MG CAPSULES [Concomitant]
  6. NAPROXEN 250 MG TABLETS [Concomitant]
  7. CYCLOBENZAPRINE 5 MG TABLETS [Concomitant]

REACTIONS (1)
  - Pruritus [None]
